FAERS Safety Report 10121040 (Version 1)
Quarter: 2014Q2

REPORT INFORMATION
  Report Type: Report from Study
  Country: US (occurrence: US)
  Receive Date: 20140425
  Receipt Date: 20140425
  Transmission Date: 20141212
  Serious: Yes (Hospitalization)
  Sender: FDA-Public Use
  Company Number: PHEH2014US008161

PATIENT
  Age: 16 Year
  Sex: Female
  Weight: 43.54 kg

DRUGS (6)
  1. TOBI PODHALER [Suspect]
     Indication: CYSTIC FIBROSIS
     Dosage: 112 MG, BID
     Route: 055
     Dates: start: 201308, end: 201309
  2. TOBI [Suspect]
     Dosage: UNK
  3. PULMOZYME [Concomitant]
     Dosage: UNK
  4. CREON [Concomitant]
     Dosage: UNK
  5. PRILOSEC [Concomitant]
     Dosage: UNK
  6. ZYRTEC [Concomitant]
     Dosage: UNK UKN, UNK

REACTIONS (1)
  - Lung infection [Unknown]
